FAERS Safety Report 10020654 (Version 1)
Quarter: 2014Q1

REPORT INFORMATION
  Report Type: Spontaneous
  Country: GB (occurrence: GB)
  Receive Date: 20140319
  Receipt Date: 20140319
  Transmission Date: 20141002
  Serious: Yes (Other)
  Sender: FDA-Public Use
  Company Number: GB-ROCHE-1362689

PATIENT
  Sex: Male

DRUGS (1)
  1. NAPROSYN [Suspect]
     Indication: PAIN
     Route: 065

REACTIONS (2)
  - Corneal oedema [Unknown]
  - Vision blurred [Unknown]
